FAERS Safety Report 9343923 (Version 2)
Quarter: 2013Q4

REPORT INFORMATION
  Report Type: Report from Study
  Country: ZA (occurrence: ZA)
  Receive Date: 20130612
  Receipt Date: 20131023
  Transmission Date: 20140711
  Serious: Yes (Death, Hospitalization)
  Sender: FDA-Public Use
  Company Number: ZA-ROCHE-1236003

PATIENT
  Age: 51 Year
  Sex: Male

DRUGS (2)
  1. MIRCERA [Suspect]
     Indication: PRODUCT USED FOR UNKNOWN INDICATION
     Route: 058
     Dates: start: 201208, end: 201310
  2. COSMOFER [Concomitant]
     Route: 065

REACTIONS (2)
  - Disease progression [Fatal]
  - Femur fracture [Unknown]
